FAERS Safety Report 5722125-0 (Version None)
Quarter: 2008Q2

REPORT INFORMATION
  Report Type: 
  Country: None (occurrence: None)
  Receive Date: 20080429
  Receipt Date: 20070510
  Transmission Date: 20081010
  Serious: No
  Sender: FDA-Public Use
  Company Number: US-ASTRAZENECA-2007UW11251

PATIENT
  Sex: Female

DRUGS (4)
  1. NEXIUM [Suspect]
     Indication: GASTROOESOPHAGEAL REFLUX DISEASE
     Route: 048
     Dates: start: 20070401
  2. NEXIUM [Suspect]
     Indication: PHARYNGOLARYNGEAL PAIN
     Route: 048
     Dates: start: 20070401
  3. NEXIUM [Suspect]
     Route: 048
     Dates: start: 20070401, end: 20070518
  4. NEXIUM [Suspect]
     Route: 048
     Dates: start: 20070401, end: 20070518

REACTIONS (5)
  - FATIGUE [None]
  - MUSCULOSKELETAL CHEST PAIN [None]
  - PAIN [None]
  - PHARYNGOLARYNGEAL PAIN [None]
  - SLUGGISHNESS [None]
